FAERS Safety Report 18772271 (Version 3)
Quarter: 2021Q2

REPORT INFORMATION
  Report Type: Report from Study
  Country: None (occurrence: ES)
  Receive Date: 20210121
  Receipt Date: 20210428
  Transmission Date: 20210717
  Serious: Yes (Death, Life-Threatening, Hospitalization, Disabling, Other)
  Sender: FDA-Public Use
  Company Number: ES-ABBVIE-21K-144-3737362-00

PATIENT
  Age: 16 Year
  Sex: Male
  Weight: 64 kg

DRUGS (2)
  1. AZATHIOPRINE. [Suspect]
     Active Substance: AZATHIOPRINE
     Indication: CROHN^S DISEASE
     Route: 048
     Dates: start: 20170310, end: 20210118
  2. HUMIRA [Suspect]
     Active Substance: ADALIMUMAB
     Indication: CROHN^S DISEASE
     Route: 058
     Dates: start: 20170810, end: 20210118

REACTIONS (1)
  - Hepatosplenic T-cell lymphoma [Fatal]

NARRATIVE: CASE EVENT DATE: 20210118
